FAERS Safety Report 6730683-2 (Version None)
Quarter: 2010Q2

REPORT INFORMATION
  Report Type: 
  Country: None (occurrence: None)
  Receive Date: 20100518
  Receipt Date: 20100513
  Transmission Date: 20101027
  Serious: Yes (Other)
  Sender: FDA-Public Use
  Company Number: GB-MERCK-1005GBR00039

PATIENT
  Age: 44 Year
  Sex: Female
  Weight: 91 kg

DRUGS (8)
  1. JANUVIA [Suspect]
     Route: 048
     Dates: start: 20100414, end: 20100422
  2. ALBUTEROL [Concomitant]
     Route: 065
  3. AMLODIPINE [Concomitant]
     Route: 065
  4. DOXAZOSIN MESYLATE [Concomitant]
     Route: 065
  5. ZETIA [Concomitant]
     Route: 065
  6. METFORMIN [Concomitant]
     Route: 065
  7. PAROXETINE [Concomitant]
     Route: 065
  8. RAMIPRIL [Concomitant]
     Route: 065

REACTIONS (1)
  - PRURITUS GENERALISED [None]
